FAERS Safety Report 8088807-3 (Version None)
Quarter: 2012Q1

REPORT INFORMATION
  Report Type: 
  Country: None (occurrence: None)
  Receive Date: 20120128
  Receipt Date: 20110429
  Transmission Date: 20120608
  Serious: No
  Sender: FDA-Public Use
  Company Number: US-ABBOTT-11P-163-0722774-00

PATIENT
  Age: 58 Year
  Sex: Female

DRUGS (4)
  1. HUMIRA [Suspect]
     Indication: RHEUMATOID ARTHRITIS
     Dates: start: 20050101
  2. ACUFLEX [Concomitant]
     Indication: ARTHRALGIA
  3. CALCIUM [Concomitant]
     Indication: MINERAL SUPPLEMENTATION
  4. OMEGA 3 VITAMIN [Concomitant]
     Indication: VITAMIN SUPPLEMENTATION

REACTIONS (2)
  - SKIN PAPILLOMA [None]
  - MOBILITY DECREASED [None]
